FAERS Safety Report 6257200-8 (Version None)
Quarter: 2009Q3

REPORT INFORMATION
  Report Type: 
  Country: None (occurrence: None)
  Receive Date: 20090706
  Receipt Date: 20090623
  Transmission Date: 20100115
  Serious: Yes (Hospitalization)
  Sender: FDA-Public Use
  Company Number: DE-ELI_LILLY_AND_COMPANY-DE200906005426

PATIENT
  Age: 45 Year
  Sex: Male

DRUGS (9)
  1. ZYPREXA [Suspect]
     Indication: DEPRESSION
     Dosage: 5 MG, UNK
     Route: 048
     Dates: start: 20080101
  2. BUPROPION HYDROCHLORIDE [Concomitant]
     Dosage: 150 MG, UNK
     Route: 048
     Dates: start: 20081111, end: 20081118
  3. INEGY [Concomitant]
     Dosage: 20 MG, UNK
     Route: 048
  4. TAVOR [Concomitant]
     Dosage: 1.5 MG, UNK
     Route: 048
     Dates: start: 20081108
  5. DALMADORM [Concomitant]
     Dosage: 30 MG, UNK
     Dates: start: 20081108
  6. REBOXETINE [Concomitant]
     Dosage: 4 MG, DAILY (1/D)
     Dates: end: 20080101
  7. REBOXETINE [Concomitant]
     Dosage: 4 MG, DAILY (1/D)
  8. CIPRALEX [Concomitant]
     Dosage: 10 MG, UNK
     Dates: end: 20080101
  9. CIPRALEX [Concomitant]
     Dosage: 10 MG, UNK
     Dates: start: 20081118

REACTIONS (7)
  - INCREASED APPETITE [None]
  - OFF LABEL USE [None]
  - SEXUAL DYSFUNCTION [None]
  - SLEEP DISORDER [None]
  - SUICIDAL IDEATION [None]
  - WEIGHT DECREASED [None]
  - WEIGHT INCREASED [None]
